FAERS Safety Report 8454234-X (Version None)
Quarter: 2012Q2

REPORT INFORMATION
  Report Type: 
  Country: None (occurrence: None)
  Receive Date: 20120620
  Receipt Date: 20120613
  Transmission Date: 20120825
  Serious: Yes (Hospitalization)
  Sender: FDA-Public Use
  Company Number: DK-B.I. PHARMACEUTICALS,INC./RIDGEFIELD-2012-SW-00346DB

PATIENT
  Sex: Male
  Weight: 75 kg

DRUGS (3)
  1. ISOPTIN [Concomitant]
     Indication: HYPERTENSION
     Dates: start: 20110401
  2. COOZAR COMP. [Concomitant]
     Indication: HYPERTENSION
     Dates: start: 20070320
  3. PRADAXA [Suspect]
     Indication: ATRIAL FIBRILLATION
     Dosage: 300 MG
     Route: 048
     Dates: start: 20110914, end: 20120413

REACTIONS (1)
  - IRON DEFICIENCY ANAEMIA [None]
